FAERS Safety Report 9069662 (Version 2)
Quarter: 2013Q1

REPORT INFORMATION
  Report Type: Spontaneous
  Country: JP (occurrence: JP)
  Receive Date: 20130215
  Receipt Date: 20130222
  Transmission Date: 20140127
  Serious: Yes (Other)
  Sender: FDA-Public Use
  Company Number: JP-B.I. PHARMACEUTICALS,INC./RIDGEFIELD-2013-BI-03403NB

PATIENT
  Age: 67 None
  Sex: Female
  Weight: 54 kg

DRUGS (3)
  1. MICAMLO COMBINATION [Suspect]
     Indication: HYPERTENSION
     Route: 048
     Dates: start: 20121019, end: 20130201
  2. LIPITOR [Suspect]
     Indication: HYPERLIPIDAEMIA
     Dosage: 5 MG
     Route: 048
     Dates: start: 20121212, end: 20130201
  3. ARTIST [Suspect]
     Indication: HYPERTENSION
     Dosage: 5 MG
     Route: 048
     Dates: start: 20111212, end: 20130201

REACTIONS (1)
  - Pustular psoriasis [Not Recovered/Not Resolved]
